FAERS Safety Report 9786888 (Version 2)
Quarter: 2014Q3

REPORT INFORMATION
  Report Type: Spontaneous
  Country: FR (occurrence: FR)
  Receive Date: 20131227
  Receipt Date: 20140808
  Transmission Date: 20150326
  Serious: Yes (Other)
  Sender: FDA-Public Use
  Company Number: FR-ABBVIE-13P-056-1183106-00

PATIENT
  Age: 3 Month
  Sex: Male

DRUGS (3)
  1. BACTRIM [Suspect]
     Active Substance: SULFAMETHOXAZOLE\TRIMETHOPRIM
     Indication: PYELONEPHRITIS
     Route: 048
     Dates: start: 20131124, end: 20131210
  2. CEFTRIAXONE. [Concomitant]
     Active Substance: CEFTRIAXONE
     Indication: PRODUCT USED FOR UNKNOWN INDICATION
     Dates: start: 20131120, end: 20131124
  3. DEPAKINE [Suspect]
     Active Substance: VALPROATE SODIUM
     Indication: GENERALISED TONIC-CLONIC SEIZURE
     Route: 048
     Dates: start: 20131124, end: 20131210

REACTIONS (4)
  - Erythema [Unknown]
  - Purpura [Unknown]
  - Vasculitis [Unknown]
  - Neutropenia [Unknown]

NARRATIVE: CASE EVENT DATE: 20131208
